FAERS Safety Report 15797846 (Version 1)
Quarter: 2019Q1

REPORT INFORMATION
  Report Type: Spontaneous
  Country: US (occurrence: US)
  Receive Date: 20190108
  Receipt Date: 20190108
  Transmission Date: 20190417
  Serious: No
  Sender: FDA-Public Use
  Company Number: None

PATIENT
  Age: 65 Year
  Sex: Female
  Weight: 103.5 kg

DRUGS (10)
  1. ALENDRONATE SODIUM TABLETS, USP [Suspect]
     Active Substance: ALENDRONATE SODIUM
     Indication: OSTEOPENIA
     Dosage: ?          QUANTITY:1 TABLET(S);OTHER FREQUENCY:WEEK;?
     Route: 048
     Dates: start: 20181201, end: 20181229
  2. LEVOTHYROXINE. [Concomitant]
     Active Substance: LEVOTHYROXINE
  3. CALCIUM/MAGNESIUM [Concomitant]
     Active Substance: CALCIUM\MAGNESIUM
  4. ALENDRONATE [Concomitant]
     Active Substance: ALENDRONATE SODIUM
  5. FISH [Concomitant]
     Active Substance: FISH
  6. SUPER B (THIAMIN, RIBOFLAVIN, NIACIN, B6, FOLATE. B12, BIOTIN, PANTHOTHENIC ACID, CALCIUM, MAGNESIUM. ZINC, SELENIUM, MANGANESE) [Concomitant]
  7. ORGANIC COCONUT OIL [Concomitant]
  8. METHYLPREDNISOLONE. [Concomitant]
     Active Substance: METHYLPREDNISOLONE
  9. FLAX + BORAGE OIL [Concomitant]
  10. AMLODIPINE BESYLATE. [Concomitant]
     Active Substance: AMLODIPINE BESYLATE

REACTIONS (3)
  - Therapy cessation [None]
  - Ear pain [None]
  - Pain in jaw [None]

NARRATIVE: CASE EVENT DATE: 20190102
